FAERS Safety Report 17860212 (Version 1)
Quarter: 2020Q2

REPORT INFORMATION
  Report Type: Spontaneous
  Country: US (occurrence: US)
  Receive Date: 20200604
  Receipt Date: 20200604
  Transmission Date: 20200714
  Serious: Yes (Hospitalization, Other)
  Sender: FDA-Public Use
  Company Number: US-ACCORD-183796

PATIENT
  Age: 19 Year
  Sex: Female

DRUGS (1)
  1. AMLODIPINE [Suspect]
     Active Substance: AMLODIPINE BESYLATE
     Dosage: INGESTED
     Route: 048

REACTIONS (5)
  - Tachypnoea [Recovered/Resolved]
  - Drug level increased [Recovered/Resolved]
  - Anxiety [Recovered/Resolved]
  - Intentional overdose [Unknown]
  - Tachycardia [Recovered/Resolved]
